FAERS Safety Report 7298668-8 (Version None)
Quarter: 2011Q1

REPORT INFORMATION
  Report Type: 
  Country: None (occurrence: None)
  Receive Date: 20110217
  Receipt Date: 20110214
  Transmission Date: 20110831
  Serious: Yes (Other)
  Sender: FDA-Public Use
  Company Number: IT-PFIZER INC-2011033181

PATIENT
  Age: 79 Year
  Sex: Male

DRUGS (7)
  1. DELTACORTENE [Concomitant]
     Dosage: 5 MG, UNK
     Route: 048
     Dates: start: 20110201, end: 20110203
  2. OMEPRAZOLE [Concomitant]
     Dosage: 20 MG, UNK
     Route: 048
     Dates: start: 20110201, end: 20110203
  3. NORVASC [Concomitant]
     Dosage: 5 MG, UNK
     Route: 048
     Dates: start: 20110201, end: 20110203
  4. TAZOCIN [Suspect]
     Indication: PNEUMONIA
     Dosage: 13.5 G, 1X/DAY
     Route: 042
     Dates: start: 20110201, end: 20110203
  5. SEREVENT [Concomitant]
     Dosage: 50 UG, UNK
     Dates: start: 20110201, end: 20110203
  6. TAVANIC [Concomitant]
     Dosage: 250 MG, UNK
     Route: 048
     Dates: start: 20110201, end: 20110203
  7. FLUIMUCIL [Concomitant]
     Dosage: 600 MG, UNK
     Route: 048
     Dates: start: 20110201, end: 20110203

REACTIONS (1)
  - ANGIOEDEMA [None]
